FAERS Safety Report 7326455-0 (Version None)
Quarter: 2011Q1

REPORT INFORMATION
  Report Type: 
  Country: None (occurrence: None)
  Receive Date: 20110302
  Receipt Date: 20110218
  Transmission Date: 20110831
  Serious: Yes (Hospitalization)
  Sender: FDA-Public Use
  Company Number: JP-BRISTOL-MYERS SQUIBB COMPANY-15548829

PATIENT
  Age: 62 Year
  Sex: Male
  Weight: 55 kg

DRUGS (5)
  1. AMARYL [Concomitant]
     Dosage: TABLET
     Dates: start: 20080521
  2. GASTER D [Concomitant]
     Dosage: TABS
     Dates: start: 20060802
  3. SAXAGLIPTIN [Suspect]
     Indication: TYPE 2 DIABETES MELLITUS
     Route: 048
     Dates: start: 20101106, end: 20110119
  4. SENNOSIDE [Concomitant]
     Dosage: TAB
     Dates: start: 20071205
  5. MUCOSTA [Concomitant]
     Dosage: TABLET
     Dates: start: 20060411

REACTIONS (1)
  - PANCREATIC CARCINOMA [None]
